FAERS Safety Report 13482599 (Version 2)
Quarter: 2017Q3

REPORT INFORMATION
  Report Type: Report from Study
  Country: US (occurrence: US)
  Receive Date: 20170426
  Receipt Date: 20170727
  Transmission Date: 20171127
  Serious: No
  Sender: FDA-Public Use
  Company Number: US-AMGEN-USASL2017059868

PATIENT
  Sex: Female

DRUGS (1)
  1. ENBREL [Suspect]
     Active Substance: ETANERCEPT
     Indication: PRODUCT USED FOR UNKNOWN INDICATION
     Dosage: 50 MG, QWK
     Route: 065

REACTIONS (9)
  - Rash erythematous [Unknown]
  - Rash pruritic [Unknown]
  - Miliaria [Unknown]
  - Injection site pain [Unknown]
  - Ear infection [Unknown]
  - Weight increased [Unknown]
  - Drug effect delayed [Unknown]
  - Laboratory test abnormal [Unknown]
  - Sinusitis [Unknown]
